FAERS Safety Report 15885762 (Version 1)
Quarter: 2019Q1

REPORT INFORMATION
  Report Type: Spontaneous
  Country: US (occurrence: US)
  Receive Date: 20190129
  Receipt Date: 20190129
  Transmission Date: 20190417
  Serious: No
  Sender: FDA-Public Use
  Company Number: US-BAUSCH-BL-2019-001817

PATIENT
  Age: 76 Year
  Sex: Female

DRUGS (1)
  1. VITRASE [Suspect]
     Active Substance: HYALURONIDASE, OVINE
     Indication: ADJUVANT THERAPY
     Dosage: INJECTIONS IN HER FACE
     Route: 065
     Dates: start: 2017

REACTIONS (1)
  - Drug ineffective [Unknown]
